FAERS Safety Report 18340076 (Version 1)
Quarter: 2020Q4

REPORT INFORMATION
  Report Type: Spontaneous
  Country: CN (occurrence: CN)
  Receive Date: 20201002
  Receipt Date: 20201002
  Transmission Date: 20210113
  Serious: Yes (Hospitalization, Other)
  Sender: FDA-Public Use
  Company Number: CN-JNJFOC-20200951586

PATIENT
  Age: 92 Year
  Sex: Male
  Weight: 60 kg

DRUGS (5)
  1. RIVAROXABAN [Suspect]
     Active Substance: RIVAROXABAN
     Indication: ARTERIOSCLEROSIS CORONARY ARTERY
     Dosage: 10 MG, QD
     Route: 048
     Dates: start: 20200201, end: 20200914
  2. RIVAROXABAN [Interacting]
     Active Substance: RIVAROXABAN
     Indication: CARDIOMEGALY
     Dosage: 5 MG, QD
     Route: 048
     Dates: start: 202009
  3. PLAVIX [Interacting]
     Active Substance: CLOPIDOGREL BISULFATE
     Indication: CARDIOMEGALY
  4. DICLOFENAC [Suspect]
     Active Substance: DICLOFENAC
     Indication: PAIN
     Dosage: 1 DF, BID
     Route: 048
     Dates: start: 20200903, end: 20200910
  5. PLAVIX [Interacting]
     Active Substance: CLOPIDOGREL BISULFATE
     Indication: ARTERIOSCLEROSIS CORONARY ARTERY
     Dosage: 1 DF, QD
     Route: 048
     Dates: start: 20200201, end: 20200914

REACTIONS (10)
  - Melaena [Recovering/Resolving]
  - Labelled drug-drug interaction medication error [Unknown]
  - Upper gastrointestinal haemorrhage [Recovering/Resolving]
  - Cardiac failure [Recovering/Resolving]
  - Prerenal failure [Unknown]
  - Off label use [Unknown]
  - Chest discomfort [Recovering/Resolving]
  - Dyspnoea [Recovering/Resolving]
  - Pain [Unknown]
  - Product use in unapproved indication [Unknown]

NARRATIVE: CASE EVENT DATE: 20200201
